FAERS Safety Report 16741471 (Version 1)
Quarter: 2019Q3

REPORT INFORMATION
  Report Type: Spontaneous
  Country: US (occurrence: US)
  Receive Date: 20190826
  Receipt Date: 20190826
  Transmission Date: 20191005
  Serious: Yes (Death, Hospitalization)
  Sender: FDA-Public Use
  Company Number: US-PFIZER INC-2019361371

PATIENT
  Age: 58 Year
  Sex: Male
  Weight: 132.45 kg

DRUGS (6)
  1. RETACRIT [Suspect]
     Active Substance: EPOETIN ALFA-EPBX
     Dosage: 60000 IU, WEEKLY (ONCE WEEKLY)
     Route: 058
     Dates: start: 20190228
  2. JEVTANA [Concomitant]
     Active Substance: CABAZITAXEL
     Dosage: 1 DF, UNK (1 DOSE ADMINISTERED
     Dates: start: 20190207
  3. RETACRIT [Suspect]
     Active Substance: EPOETIN ALFA-EPBX
     Indication: PROSTATE CANCER
     Dosage: 40000 IU, CYCLIC ON DAYS 1, 8, 15 AND THEN FOR 21 DAYS (DAY 1)
     Route: 058
     Dates: start: 20190207, end: 20190228
  4. XGEVA [Concomitant]
     Active Substance: DENOSUMAB
     Dosage: 1 DF, UNK (1 DOSE ADMINISTERED
     Dates: start: 20190207
  5. LUPRON [Concomitant]
     Active Substance: LEUPROLIDE ACETATE
     Dosage: 1 DF, UNK (1 DOSE ADMINISTERED
     Dates: start: 20190207
  6. JEVTANA [Concomitant]
     Active Substance: CABAZITAXEL
     Dosage: 1 DF, UNK (1 DOSE ADMINISTERED
     Dates: start: 20190228

REACTIONS (7)
  - Metastatic neoplasm [Unknown]
  - Off label use [Unknown]
  - Death [Fatal]
  - Metastases to spine [Unknown]
  - Retroperitoneal neoplasm metastatic [Unknown]
  - Pain [Unknown]
  - Product use in unapproved indication [Unknown]

NARRATIVE: CASE EVENT DATE: 20190207
